FAERS Safety Report 14123117 (Version 1)
Quarter: 2017Q4

REPORT INFORMATION
  Report Type: Spontaneous
  Country: US (occurrence: US)
  Receive Date: 20171024
  Receipt Date: 20171024
  Transmission Date: 20180321
  Serious: Yes (Other)
  Sender: FDA-Public Use
  Company Number: None

PATIENT
  Age: 44 Year
  Sex: Female
  Weight: 58.5 kg

DRUGS (3)
  1. PERFLUTREN LIPID MICROSPHERES [Suspect]
     Active Substance: PERFLUTREN
     Indication: ECHOCARDIOGRAM
     Dosage: ?          QUANTITY:1 INJECTION(S);OTHER FREQUENCY:ONE TIME DOSE;?
     Route: 042
     Dates: start: 20170922, end: 20170922
  2. NORVASC [Concomitant]
     Active Substance: AMLODIPINE BESYLATE
  3. SKYLA [Concomitant]
     Active Substance: LEVONORGESTREL

REACTIONS (3)
  - Dyspnoea [None]
  - Throat tightness [None]
  - Mouth swelling [None]

NARRATIVE: CASE EVENT DATE: 20170922
